FAERS Safety Report 21994126 (Version 4)
Quarter: 2023Q4

REPORT INFORMATION
  Report Type: Spontaneous
  Country: US (occurrence: US)
  Receive Date: 20230215
  Receipt Date: 20231103
  Transmission Date: 20240109
  Serious: No
  Sender: FDA-Public Use
  Company Number: US-BRISTOL-MYERS SQUIBB COMPANY-2023-021125

PATIENT
  Age: 88 Year
  Sex: Female
  Weight: 51.71 kg

DRUGS (2)
  1. REVLIMID [Suspect]
     Active Substance: LENALIDOMIDE
     Indication: Myelodysplastic syndrome
     Dosage: FREQUENCY: DAILY, FOR 2 DAYS ON, 1 DAY OFF FOR 14 DAYS, THEN 7 DAYS OFF
     Route: 048
     Dates: start: 20220921
  2. REVLIMID [Suspect]
     Active Substance: LENALIDOMIDE
     Indication: Malignant melanoma

REACTIONS (5)
  - Diarrhoea [Not Recovered/Not Resolved]
  - Nausea [Unknown]
  - Fatigue [Unknown]
  - Off label use [Unknown]
  - Hypoaesthesia [Unknown]
